FAERS Safety Report 9759528 (Version 1)
Quarter: 2013Q4

REPORT INFORMATION
  Report Type: Spontaneous
  Country: US (occurrence: US)
  Receive Date: 20131216
  Receipt Date: 20131216
  Transmission Date: 20140711
  Serious: No
  Sender: FDA-Public Use
  Company Number: US-BAYER-2013-147876

PATIENT
  Sex: 0

DRUGS (4)
  1. ALEVE CAPLET [Suspect]
     Indication: MIGRAINE
     Dosage: 2 ALEVE, UNK
  2. TYLENOL [PARACETAMOL] [Concomitant]
     Indication: MIGRAINE
     Dosage: 2 TYLENOL, UNK
  3. ULTRAM [Concomitant]
     Indication: MIGRAINE
     Dosage: 2 ULTRAMS,, UNK
  4. EXCEDRIN [ACETYLSALICYLIC ACID,CAFFEINE,PARACETAMOL] [Concomitant]
     Indication: MIGRAINE
     Dosage: 1 EXCEDRIN,, UNK

REACTIONS (1)
  - Off label use [None]
